FAERS Safety Report 6426485-7 (Version None)
Quarter: 2009Q4

REPORT INFORMATION
  Report Type: 
  Country: None (occurrence: None)
  Receive Date: 20091030
  Receipt Date: 20091022
  Transmission Date: 20100525
  Serious: Yes (Hospitalization)
  Sender: FDA-Public Use
  Company Number: 2009AL006775

PATIENT
  Age: 47 Year
  Sex: Female

DRUGS (1)
  1. VERAPAMIL HYDROCHLORIDE [Suspect]
     Dosage: 16 GM; X1;

REACTIONS (13)
  - BLOOD LACTIC ACID INCREASED [None]
  - BLOOD PRESSURE IMMEASURABLE [None]
  - CALCIUM IONISED DECREASED [None]
  - CARDIAC ARREST [None]
  - CIRCULATORY COLLAPSE [None]
  - CONTINUOUS HAEMODIAFILTRATION [None]
  - CONVULSION [None]
  - HEART RATE DECREASED [None]
  - HYPOTENSION [None]
  - LOSS OF CONSCIOUSNESS [None]
  - METABOLIC ACIDOSIS [None]
  - OVERDOSE [None]
  - PULSE ABSENT [None]
